FAERS Safety Report 8859276 (Version 3)
Quarter: 2012Q4

REPORT INFORMATION
  Report Type: 
  Country: JP (occurrence: JP)
  Receive Date: 20121024
  Receipt Date: 20121212
  Transmission Date: 20130627
  Serious: Yes (Hospitalization)
  Sender: FDA-Public Use
  Company Number: JP-ALLERGAN-1214536US

PATIENT
  Age: 53 Year
  Sex: Male

DRUGS (2)
  1. BOTOX [Suspect]
     Indication: MUSCLE SPASMS
     Dosage: 300 UNITS, single
     Route: 030
     Dates: start: 20120605, end: 20120605
  2. BOTOX [Suspect]
     Dosage: UNK
     Route: 030
     Dates: start: 20120204, end: 20120204

REACTIONS (4)
  - Acute respiratory failure [Recovered/Resolved]
  - Tumour compression [Unknown]
  - Pneumonia [Recovered/Resolved]
  - Urinary tract infection [Recovered/Resolved]
